FAERS Safety Report 7623004-4 (Version None)
Quarter: 2011Q3

REPORT INFORMATION
  Report Type: 
  Country: None (occurrence: None)
  Receive Date: 20110720
  Receipt Date: 20110708
  Transmission Date: 20111222
  Serious: Yes (Disabling, Other)
  Sender: FDA-Public Use
  Company Number: US-JNJFOC-20110100851

PATIENT
  Sex: Female
  Weight: 54.89 kg

DRUGS (7)
  1. INFLIXIMAB, RECOMBINANT [Suspect]
     Route: 042
     Dates: start: 20080201
  2. CALCIUM CARBONATE [Concomitant]
  3. BETAMETHASONE [Concomitant]
     Indication: PSORIASIS
  4. FOSAMAX [Concomitant]
  5. PREVACID [Concomitant]
  6. INFLIXIMAB, RECOMBINANT [Suspect]
     Indication: PSORIASIS
     Route: 042
     Dates: start: 20100816
  7. CORTICOSTEROIDS, NOS [Concomitant]
     Indication: PSORIASIS

REACTIONS (1)
  - COLON CANCER STAGE III [None]
